FAERS Safety Report 10549436 (Version 1)
Quarter: 2014Q4

REPORT INFORMATION
  Report Type: Spontaneous
  Country: US (occurrence: None)
  Receive Date: 20141020
  Receipt Date: 20141020
  Transmission Date: 20150529
  Serious: No
  Sender: FDA-Public Use
  Company Number: AEGR000656

PATIENT
  Age: 49 Year
  Sex: Female
  Weight: 86.6 kg

DRUGS (1)
  1. JUXTAPID [Suspect]
     Active Substance: LOMITAPIDE MESYLATE
     Indication: TYPE IIA HYPERLIPIDAEMIA
     Route: 048
     Dates: start: 20140707, end: 2014

REACTIONS (7)
  - Diarrhoea [None]
  - Nausea [None]
  - Upper respiratory tract infection [None]
  - Chills [None]
  - Pain [None]
  - Abdominal pain upper [None]
  - Fatigue [None]

NARRATIVE: CASE EVENT DATE: 201407
